FAERS Safety Report 23546344 (Version 1)
Quarter: 2024Q1

REPORT INFORMATION
  Report Type: Spontaneous
  Country: CA (occurrence: CA)
  Receive Date: 20240220
  Receipt Date: 20240220
  Transmission Date: 20240409
  Serious: Yes (Death)
  Sender: FDA-Public Use
  Company Number: CA-HLS-202400313

PATIENT
  Sex: Female

DRUGS (1)
  1. CLOZAPINE [Suspect]
     Active Substance: CLOZAPINE
     Indication: Product used for unknown indication
     Dosage: TABLETS DOSAGE FORM
     Route: 048

REACTIONS (6)
  - Aggression [Fatal]
  - Death [Fatal]
  - Dizziness [Fatal]
  - Headache [Fatal]
  - Incontinence [Fatal]
  - Somnolence [Fatal]
